FAERS Safety Report 4311666-9 (Version None)
Quarter: 2004Q1

REPORT INFORMATION
  Report Type: 
  Country: None (occurrence: None)
  Receive Date: 20040302
  Receipt Date: 20031112
  Transmission Date: 20041129
  Serious: No
  Sender: FDA-Public Use
  Company Number: 200328377BWH

PATIENT
  Age: 51 Year
  Sex: Male
  Weight: 97.5234 kg

DRUGS (9)
  1. LEVITRA [Suspect]
     Indication: ERECTILE DYSFUNCTION
     Dosage: ORAL
     Route: 048
     Dates: start: 20031101
  2. VIAGRA [Concomitant]
  3. GLUCOPHAGE [Concomitant]
  4. AVANDIA [Concomitant]
  5. LOPID [Concomitant]
  6. LIPITOR [Concomitant]
  7. WELLBUTRIN [Concomitant]
  8. FOLIC ACID [Concomitant]
  9. XENICAL [Concomitant]

REACTIONS (4)
  - SCROTAL PAIN [None]
  - SCROTAL SWELLING [None]
  - TESTICULAR PAIN [None]
  - TESTICULAR SWELLING [None]
